FAERS Safety Report 15099906 (Version 1)
Quarter: 2018Q3

REPORT INFORMATION
  Report Type: Spontaneous
  Country: RU (occurrence: RU)
  Receive Date: 20180703
  Receipt Date: 20180703
  Transmission Date: 20181010
  Serious: Yes (Hospitalization)
  Sender: FDA-Public Use
  Company Number: RU-ABBVIE-18P-251-2406850-00

PATIENT
  Sex: Female

DRUGS (1)
  1. FEVARIN [Suspect]
     Active Substance: FLUVOXAMINE MALEATE
     Indication: OBSESSIVE-COMPULSIVE DISORDER
     Route: 048

REACTIONS (1)
  - Intestinal obstruction [Recovered/Resolved]

NARRATIVE: CASE EVENT DATE: 201803
